FAERS Safety Report 24786497 (Version 1)
Quarter: 2024Q4

REPORT INFORMATION
  Report Type: Spontaneous
  Country: PL (occurrence: PL)
  Receive Date: 20241230
  Receipt Date: 20241230
  Transmission Date: 20250115
  Serious: Yes (Death, Life-Threatening, Hospitalization, Other)
  Sender: SANDOZ
  Company Number: PL-NOVPHSZ-PHHY2019PL112722

PATIENT
  Age: 30 Year
  Sex: Female

DRUGS (24)
  1. AZITHROMYCIN [Suspect]
     Active Substance: AZITHROMYCIN
     Indication: Obliterative bronchiolitis
     Dosage: UNK
     Route: 065
  2. BUSULFAN [Suspect]
     Active Substance: BUSULFAN
     Indication: Myeloproliferative neoplasm
     Dosage: UNK
     Route: 065
  3. CYTARABINE [Suspect]
     Active Substance: CYTARABINE
     Indication: Chemotherapy
     Dosage: UNK
     Route: 065
  4. CLADRIBINE [Suspect]
     Active Substance: CLADRIBINE
     Indication: Pelvic neoplasm
     Dosage: UNK
     Route: 065
  5. DAUNORUBICIN [Suspect]
     Active Substance: DAUNORUBICIN
     Indication: Pelvic neoplasm
     Dosage: UNK
     Route: 065
  6. CYCLOPHOSPHAMIDE [Suspect]
     Active Substance: CYCLOPHOSPHAMIDE
     Indication: Myelodysplastic syndrome
     Dosage: UNK
     Route: 065
  7. MITOXANTRONE [Suspect]
     Active Substance: MITOXANTRONE HYDROCHLORIDE
     Indication: Chemotherapy
     Dosage: UNK
     Route: 065
  8. MONTELUKAST SODIUM [Suspect]
     Active Substance: MONTELUKAST\MONTELUKAST SODIUM
     Indication: Stem cell transplant
     Dosage: UNK
     Route: 048
  9. MONTELUKAST SODIUM [Suspect]
     Active Substance: MONTELUKAST\MONTELUKAST SODIUM
     Indication: Graft versus host disease
  10. MONTELUKAST SODIUM [Suspect]
     Active Substance: MONTELUKAST\MONTELUKAST SODIUM
     Indication: Obliterative bronchiolitis
  11. METHYLPREDNISOLONE [Suspect]
     Active Substance: METHYLPREDNISOLONE
     Indication: Stem cell transplant
     Dosage: 2 MG/KG, UNK
     Route: 065
  12. METHYLPREDNISOLONE [Suspect]
     Active Substance: METHYLPREDNISOLONE
     Indication: Graft versus host disease
  13. AMPHOTERICIN B [Concomitant]
     Active Substance: AMPHOTERICIN B
     Indication: Product used for unknown indication
     Dosage: UNK
     Route: 065
  14. AZACITIDINE [Concomitant]
     Active Substance: AZACITIDINE
     Indication: Product used for unknown indication
     Dosage: UNK
     Route: 065
  15. BUSULFAN [Concomitant]
     Active Substance: BUSULFAN
     Indication: Product used for unknown indication
     Dosage: UNK
     Route: 065
  16. CYCLOPHOSPHAMIDE [Concomitant]
     Active Substance: CYCLOPHOSPHAMIDE
     Indication: Product used for unknown indication
     Dosage: UNK
     Route: 065
  17. FLUCONAZOLE [Concomitant]
     Active Substance: FLUCONAZOLE
     Indication: Product used for unknown indication
     Dosage: UNK
     Route: 065
  18. FLUDARABINE [Concomitant]
     Active Substance: FLUDARABINE PHOSPHATE
     Indication: Product used for unknown indication
     Dosage: UNK
     Route: 065
  19. FLUTICASONE [Concomitant]
     Active Substance: FLUTICASONE
     Route: 065
  20. FLUTICASONE [Concomitant]
     Active Substance: FLUTICASONE
     Indication: Obliterative bronchiolitis
     Route: 065
  21. POSACONAZOLE [Concomitant]
     Active Substance: POSACONAZOLE
     Indication: Product used for unknown indication
     Dosage: UNK
     Route: 065
  22. TACROLIMUS [Concomitant]
     Active Substance: TACROLIMUS
     Indication: Product used for unknown indication
     Dosage: UNK
     Route: 065
  23. TREOSULFAN [Concomitant]
     Active Substance: TREOSULFAN
     Indication: Product used for unknown indication
     Dosage: UNK
     Route: 065
  24. VORICONAZOLE [Concomitant]
     Active Substance: VORICONAZOLE
     Indication: Product used for unknown indication
     Dosage: UNK
     Route: 065

REACTIONS (17)
  - Stenotrophomonas infection [Fatal]
  - Bronchopulmonary aspergillosis [Fatal]
  - Graft versus host disease in gastrointestinal tract [Fatal]
  - Device related infection [Fatal]
  - Drug ineffective [Fatal]
  - Disease progression [Fatal]
  - Graft versus host disease [Fatal]
  - Bone neoplasm [Fatal]
  - Product use in unapproved indication [Fatal]
  - Mucosal toxicity [Fatal]
  - Death [Fatal]
  - Neutropenia [Fatal]
  - Enterococcal infection [Fatal]
  - Agranulocytosis [Unknown]
  - Pyrexia [Unknown]
  - Myelodysplastic syndrome [Unknown]
  - Recurrent cancer [Unknown]

NARRATIVE: CASE EVENT DATE: 20170301
